FAERS Safety Report 12887332 (Version 1)
Quarter: 2016Q4

REPORT INFORMATION
  Report Type: Report from Study
  Country: US (occurrence: US)
  Receive Date: 20161026
  Receipt Date: 20161026
  Transmission Date: 20170207
  Serious: Yes (Death, Life-Threatening)
  Sender: FDA-Public Use
  Company Number: US-JAZZ-2016-US-006028

PATIENT
  Age: 3 Year
  Sex: Male
  Weight: 8.16 kg

DRUGS (2)
  1. DEFIBROTIDE (INV) [Suspect]
     Active Substance: DEFIBROTIDE SODIUM
     Indication: VENOOCCLUSIVE DISEASE
     Dosage: 380 MG, QD
     Route: 042
     Dates: start: 20140911, end: 20140919
  2. DEFIBROTIDE (INV) [Suspect]
     Active Substance: DEFIBROTIDE SODIUM
     Dosage: 380 MG, QD
     Route: 042
     Dates: start: 20140923, end: 20140930

REACTIONS (1)
  - Pulmonary haemorrhage [Fatal]

NARRATIVE: CASE EVENT DATE: 20141003
